FAERS Safety Report 5520473-0 (Version None)
Quarter: 2007Q4

REPORT INFORMATION
  Report Type: 
  Country: None (occurrence: None)
  Receive Date: 20071119
  Receipt Date: 20071114
  Transmission Date: 20080405
  Serious: Yes (Hospitalization)
  Sender: FDA-Public Use
  Company Number: PHNU2007DE03813

PATIENT
  Sex: Female

DRUGS (12)
  1. NEBILET [Concomitant]
     Dosage: 1.5 DF/D (1-0-0.5)
  2. TORSEMIDE [Concomitant]
     Dosage: 1 DF, BID
  3. SIMVASTATIN [Concomitant]
     Dosage: 1 DF, QD
  4. CORVATON - SLOW RELEASE [Concomitant]
  5. SIOFOR [Concomitant]
     Dosage: 0.5 DF, QD
  6. MANINIL [Concomitant]
     Dosage: 1 DF, BID
  7. NOVODIGAL [Concomitant]
     Dosage: 1 DF, TID (0-1-1-0-1)
  8. ALLOPURINOL [Concomitant]
     Dosage: 1 DF, QD
  9. REQUIP [Concomitant]
     Dosage: 1 DF, BID
  10. INDAPAMIDE [Concomitant]
     Dosage: 1 DF, QD
  11. MARCUMAR [Concomitant]
  12. RASILEZ [Suspect]
     Indication: HYPERTENSION
     Dosage: 300 MG/D
     Dates: start: 20070101

REACTIONS (4)
  - BLOOD PRESSURE INADEQUATELY CONTROLLED [None]
  - CARDIAC FAILURE ACUTE [None]
  - OEDEMA PERIPHERAL [None]
  - WEIGHT INCREASED [None]
